FAERS Safety Report 9274999 (Version 1)
Quarter: 2013Q2

REPORT INFORMATION
  Report Type: Spontaneous
  Country: US (occurrence: None)
  Receive Date: 20130501
  Receipt Date: 20130501
  Transmission Date: 20140414
  Serious: No
  Sender: FDA-Public Use
  Company Number: None

PATIENT
  Sex: Female
  Weight: 64.86 kg

DRUGS (2)
  1. LASTACAFT [Suspect]
     Indication: HYPERSENSITIVITY
     Route: 031
     Dates: start: 20130426, end: 20130426
  2. LATISSE [Suspect]
     Indication: MADAROSIS
     Route: 061
     Dates: start: 20120201, end: 20120207

REACTIONS (5)
  - Conjunctivitis [None]
  - Ocular hyperaemia [None]
  - Eye swelling [None]
  - Eye pruritus [None]
  - Product quality issue [None]
